FAERS Safety Report 11506051 (Version 1)
Quarter: 2015Q3

REPORT INFORMATION
  Report Type: Spontaneous
  Country: MK (occurrence: None)
  Receive Date: 20150911
  Receipt Date: 20150911
  Transmission Date: 20151125
  Serious: Yes (Death, Hospitalization, Other)
  Sender: FDA-Public Use
  Company Number: 2015-PEL-000585

PATIENT
  Age: 47 Year
  Sex: Female

DRUGS (6)
  1. METHYLPREDNISOLONE (METHYLPREDNISOLONE) [Concomitant]
     Active Substance: METHYLPREDNISOLONE
  2. INSULIN (INSULIN) [Concomitant]
     Active Substance: INSULIN NOS
  3. SEVOFLURANE. [Suspect]
     Active Substance: SEVOFLURANE
     Indication: ANAESTHESIA
     Dosage: UNK, UNKNOWN
  4. DACLIZUMAB (DACLIZUMAB) [Concomitant]
  5. FRESH FROZEN PLASMA (PLASMA) [Concomitant]
  6. ERYTHROCYTES (ERYTHROCYTES) [Concomitant]

REACTIONS (12)
  - Hepatic lesion [None]
  - Pulmonary oedema [None]
  - Anxiety [None]
  - Transaminases increased [None]
  - Cardiopulmonary failure [None]
  - Anuria [None]
  - Tachycardia [None]
  - Coagulopathy [None]
  - Acute hepatic failure [None]
  - Somnolence [None]
  - Hypotension [None]
  - Bradycardia [None]
